FAERS Safety Report 6206650-4 (Version None)
Quarter: 2009Q2

REPORT INFORMATION
  Report Type: 
  Country: None (occurrence: None)
  Receive Date: 20090528
  Receipt Date: 20090526
  Transmission Date: 20091009
  Serious: Yes (Hospitalization)
  Sender: FDA-Public Use
  Company Number: HK-ROXANE LABORATORIES, INC.-2009-RO-00521RO

PATIENT
  Age: 11 Year
  Sex: Male

DRUGS (8)
  1. METHADONE [Suspect]
     Route: 048
  2. THIOPENTAL SODIUM [Concomitant]
     Route: 042
  3. SUCCINYLCHOLINE CHLORIDE [Concomitant]
     Route: 042
  4. SODIUM CHLORIDE [Concomitant]
     Indication: HYPOTENSION
     Route: 042
  5. CEFTRIAXONE [Concomitant]
     Indication: PROPHYLAXIS
     Route: 042
  6. NALOXONE [Concomitant]
     Indication: ACCIDENTAL EXPOSURE
     Route: 042
  7. NALOXONE [Concomitant]
     Route: 042
  8. NALOXONE [Concomitant]
     Route: 042

REACTIONS (2)
  - ACCIDENTAL DRUG INTAKE BY CHILD [None]
  - DEPRESSED LEVEL OF CONSCIOUSNESS [None]
